FAERS Safety Report 25628830 (Version 1)
Quarter: 2025Q3

REPORT INFORMATION
  Report Type: Spontaneous
  Country: CA (occurrence: CA)
  Receive Date: 20250731
  Receipt Date: 20250731
  Transmission Date: 20251020
  Serious: Yes (Other)
  Sender: TEVA
  Company Number: CA-TEVA-VS-3357947

PATIENT
  Age: 84 Year
  Sex: Female

DRUGS (39)
  1. BISOPROLOL [Suspect]
     Active Substance: BISOPROLOL
     Indication: Product used for unknown indication
     Route: 065
  2. BISOPROLOL [Suspect]
     Active Substance: BISOPROLOL
     Indication: Product used for unknown indication
     Route: 065
  3. BISOPROLOL [Suspect]
     Active Substance: BISOPROLOL
     Indication: Product used for unknown indication
     Route: 065
  4. TIMOLOL MALEATE [Suspect]
     Active Substance: TIMOLOL MALEATE
     Indication: Glaucoma
     Dosage: DOSE FORM:NOT SPECIFIED
     Route: 065
  5. TIMOLOL MALEATE [Suspect]
     Active Substance: TIMOLOL MALEATE
     Indication: Glaucoma
     Route: 065
  6. TIMOLOL MALEATE [Suspect]
     Active Substance: TIMOLOL MALEATE
     Indication: Glaucoma
     Route: 065
  7. TIMOLOL MALEATE [Suspect]
     Active Substance: TIMOLOL MALEATE
     Indication: Glaucoma
     Dosage: DOSE FORM:NOT SPECIFIED,PATIENT ROA:OPHTHALMIC
     Route: 065
  8. METOCLOPRAMIDE [Suspect]
     Active Substance: METOCLOPRAMIDE
     Indication: Diverticulitis
     Route: 065
  9. METOCLOPRAMIDE [Suspect]
     Active Substance: METOCLOPRAMIDE
     Indication: Diverticulitis
     Dosage: DOSE FORM:NOT SPECIFIED
     Route: 065
  10. BETAHISTINE [Suspect]
     Active Substance: BETAHISTINE
     Indication: Vertigo positional
     Route: 065
  11. BETAHISTINE [Suspect]
     Active Substance: BETAHISTINE
     Indication: Vertigo positional
     Route: 065
  12. BETAHISTINE [Suspect]
     Active Substance: BETAHISTINE
     Indication: Vertigo positional
     Route: 065
  13. BETAHISTINE [Suspect]
     Active Substance: BETAHISTINE
     Indication: Vertigo positional
     Route: 065
  14. BETAHISTINE [Suspect]
     Active Substance: BETAHISTINE
     Indication: Vertigo positional
     Route: 065
  15. BETAHISTINE [Suspect]
     Active Substance: BETAHISTINE
     Indication: Vertigo positional
     Route: 065
  16. BETAHISTINE [Suspect]
     Active Substance: BETAHISTINE
     Indication: Vertigo positional
     Route: 065
  17. ROSUVASTATIN [Suspect]
     Active Substance: ROSUVASTATIN
     Indication: Haemorrhagic stroke
     Route: 048
  18. ROSUVASTATIN [Suspect]
     Active Substance: ROSUVASTATIN
     Indication: Haemorrhagic stroke
     Route: 048
  19. VITAMIN D [Suspect]
     Active Substance: VITAMIN D NOS
     Indication: Osteoporosis
     Dosage: DOSE FORM:NOT SPECIFIED
     Route: 065
  20. VITAMIN D [Suspect]
     Active Substance: VITAMIN D NOS
     Indication: Osteoporosis
     Route: 065
  21. VITAMIN D [Suspect]
     Active Substance: VITAMIN D NOS
     Indication: Osteoporosis
     Dosage: DOSE FORM:NOT SPECIFIED
     Route: 065
  22. VITAMIN D [Suspect]
     Active Substance: VITAMIN D NOS
     Indication: Osteoporosis
     Dosage: DOSE FORM:NOT SPECIFIED
     Route: 065
  23. VITAMIN D [Suspect]
     Active Substance: VITAMIN D NOS
     Indication: Osteoporosis
     Dosage: DOSE FORM:NOT SPECIFIED
     Route: 065
  24. RISEDRONATE SODIUM [Suspect]
     Active Substance: RISEDRONATE SODIUM
     Indication: Osteoporosis
     Route: 065
  25. RISEDRONATE SODIUM [Suspect]
     Active Substance: RISEDRONATE SODIUM
     Indication: Osteoporosis
     Route: 065
  26. RISEDRONATE SODIUM [Suspect]
     Active Substance: RISEDRONATE SODIUM
     Indication: Osteoporosis
     Dosage: DOSE FORM:NOT SPECIFIED
     Route: 065
  27. RISEDRONATE SODIUM [Suspect]
     Active Substance: RISEDRONATE SODIUM
     Indication: Osteoporosis
     Dosage: DOSE FORM:NOT SPECIFIED
     Route: 065
  28. LEVOTHYROXINE SODIUM [Suspect]
     Active Substance: LEVOTHYROXINE SODIUM
     Indication: Hypothyroidism
     Dosage: DOSE FORM:NOT SPECIFIED
     Route: 065
  29. LEVOTHYROXINE SODIUM [Suspect]
     Active Substance: LEVOTHYROXINE SODIUM
     Indication: Hypothyroidism
     Route: 065
  30. LEVOTHYROXINE SODIUM [Suspect]
     Active Substance: LEVOTHYROXINE SODIUM
     Indication: Hypothyroidism
     Route: 065
  31. CANDESARTAN CILEXETIL [Suspect]
     Active Substance: CANDESARTAN CILEXETIL
     Indication: Hypertension
     Route: 048
  32. CANDESARTAN CILEXETIL [Suspect]
     Active Substance: CANDESARTAN CILEXETIL
     Indication: Hypertension
     Route: 048
  33. CANDESARTAN CILEXETIL [Suspect]
     Active Substance: CANDESARTAN CILEXETIL
     Indication: Hypertension
     Route: 048
  34. CANDESARTAN CILEXETIL [Suspect]
     Active Substance: CANDESARTAN CILEXETIL
     Indication: Hypertension
     Route: 048
  35. CANDESARTAN CILEXETIL [Suspect]
     Active Substance: CANDESARTAN CILEXETIL
     Indication: Hypertension
     Route: 048
  36. CANDESARTAN CILEXETIL [Suspect]
     Active Substance: CANDESARTAN CILEXETIL
     Indication: Hypertension
     Route: 048
  37. CANDESARTAN CILEXETIL [Suspect]
     Active Substance: CANDESARTAN CILEXETIL
     Indication: Hypertension
     Route: 048
  38. CANDESARTAN CILEXETIL [Suspect]
     Active Substance: CANDESARTAN CILEXETIL
     Indication: Hypertension
     Route: 048
  39. BISOPROLOL [Suspect]
     Active Substance: BISOPROLOL
     Indication: Product used for unknown indication
     Route: 065

REACTIONS (24)
  - Parkinson^s disease [Unknown]
  - Cognitive disorder [Unknown]
  - Fatigue [Unknown]
  - Nausea [Unknown]
  - Vitamin B12 deficiency [Unknown]
  - Dizziness [Unknown]
  - Abdominal distension [Unknown]
  - General physical health deterioration [Unknown]
  - Arthralgia [Unknown]
  - Decreased appetite [Unknown]
  - Eye pruritus [Unknown]
  - Fall [Unknown]
  - Psychiatric symptom [Unknown]
  - Loss of personal independence in daily activities [Unknown]
  - Vomiting [Unknown]
  - Hypotension [Unknown]
  - Constipation [Unknown]
  - Gait disturbance [Unknown]
  - Head injury [Unknown]
  - Lacrimation increased [Unknown]
  - Insomnia [Unknown]
  - Calcium deficiency [Unknown]
  - Dry mouth [Unknown]
  - Depressed mood [Unknown]
